FAERS Safety Report 6423046-0 (Version None)
Quarter: 2009Q4

REPORT INFORMATION
  Report Type: 
  Country: None (occurrence: None)
  Receive Date: 20091028
  Receipt Date: 20091020
  Transmission Date: 20100525
  Serious: Yes (Other)
  Sender: FDA-Public Use
  Company Number: 1022556-2009-00237

PATIENT
  Sex: Female
  Weight: 63.5036 kg

DRUGS (1)
  1. ICY HOT MESS APPLICATOR 2.5 OZ [Suspect]
     Indication: ANALGESIC THERAPY
     Dosage: 1X, TOPICAL
     Route: 061
     Dates: start: 20090912

REACTIONS (2)
  - APPLICATION SITE PAIN [None]
  - APPLICATION SITE VESICLES [None]
